FAERS Safety Report 4773089-8 (Version None)
Quarter: 2005Q3

REPORT INFORMATION
  Report Type: 
  Country: None (occurrence: None)
  Receive Date: 20050916
  Receipt Date: 20050901
  Transmission Date: 20060218
  Serious: Yes (Death, Hospitalization)
  Sender: FDA-Public Use
  Company Number: AZAUS200500261

PATIENT
  Age: 64 Year
  Sex: Male
  Weight: 71.2147 kg

DRUGS (4)
  1. VIDAZA [Suspect]
     Indication: MYELODYSPLASTIC SYNDROME
     Dosage: DAILY FOR 7 DAYS), SUBCUTANEOUS
     Route: 058
     Dates: start: 20050620, end: 20050627
  2. PROCRIT [Concomitant]
  3. CARDIZEM (DILTIAZMEM HYDROCHLORIDE) [Concomitant]
  4. LASIX [Concomitant]

REACTIONS (5)
  - CARDIAC FAILURE CONGESTIVE [None]
  - CONDITION AGGRAVATED [None]
  - PLATELET COUNT DECREASED [None]
  - PNEUMONIA [None]
  - WHITE BLOOD CELL COUNT DECREASED [None]
